FAERS Safety Report 6295074-X (Version None)
Quarter: 2009Q3

REPORT INFORMATION
  Report Type: 
  Country: None (occurrence: None)
  Receive Date: 20090731
  Receipt Date: 20090731
  Transmission Date: 20100115
  Serious: Yes (Life-Threatening, Hospitalization)
  Sender: FDA-Public Use
  Company Number: None

PATIENT
  Age: 40 Year
  Sex: Male
  Weight: 123.3784 kg

DRUGS (1)
  1. AVELOX [Suspect]
     Indication: SINUSITIS
     Dosage: 1 DOSE PO
     Route: 048
     Dates: start: 20090721, end: 20090721

REACTIONS (5)
  - ANXIETY [None]
  - BLOOD PRESSURE INCREASED [None]
  - DIZZINESS [None]
  - DRY MOUTH [None]
  - PARAESTHESIA [None]
